FAERS Safety Report 19813821 (Version 1)
Quarter: 2021Q3

REPORT INFORMATION
  Report Type: Spontaneous
  Country: ES (occurrence: ES)
  Receive Date: 20210909
  Receipt Date: 20210909
  Transmission Date: 20211014
  Serious: Yes (Hospitalization)
  Sender: FDA-Public Use
  Company Number: ES-MYLANLABS-2021M1060073

PATIENT
  Age: 84 Year
  Sex: Male

DRUGS (3)
  1. ENOXAPARINA SODICA [Concomitant]
     Active Substance: ENOXAPARIN SODIUM
     Dosage: 60 MILLIGRAM, QD
     Route: 058
     Dates: start: 20210113
  2. DIGOXINA [Concomitant]
     Active Substance: DIGOXIN
     Dosage: UNK
     Route: 048
     Dates: start: 20210113
  3. FUROSEMIDE. [Suspect]
     Active Substance: FUROSEMIDE
     Indication: CARDIAC FAILURE CONGESTIVE
     Dosage: 40 MILLIGRAM, QD
     Route: 048
     Dates: start: 20210113, end: 20210214

REACTIONS (2)
  - Hypokalaemia [Recovered/Resolved]
  - Generalised tonic-clonic seizure [Recovered/Resolved]

NARRATIVE: CASE EVENT DATE: 20210212
